FAERS Safety Report 13038081 (Version 1)
Quarter: 2016Q4

REPORT INFORMATION
  Report Type: Spontaneous
  Country: US (occurrence: US)
  Receive Date: 20161214
  Receipt Date: 20161214
  Transmission Date: 20170207
  Serious: Yes (Hospitalization)
  Sender: FDA-Public Use
  Company Number: None

PATIENT
  Age: 58 Year
  Sex: Male
  Weight: 88.3 kg

DRUGS (11)
  1. APIXABAN 5 MG [Suspect]
     Active Substance: APIXABAN
     Indication: PULMONARY EMBOLISM
     Route: 048
     Dates: start: 20160520
  2. POLYETHYLENE GLYCOL [Concomitant]
     Active Substance: POLYETHYLENE GLYCOLS
  3. DRONABINOL. [Concomitant]
     Active Substance: DRONABINOL
  4. PROCHLORPERAZINE. [Concomitant]
     Active Substance: PROCHLORPERAZINE
  5. OMEPRAZOLE. [Concomitant]
     Active Substance: OMEPRAZOLE
  6. MORPHINE [Concomitant]
     Active Substance: MORPHINE
  7. ONDANSETRON [Concomitant]
     Active Substance: ONDANSETRON
  8. LIDOCAINE. [Concomitant]
     Active Substance: LIDOCAINE
  9. ACETAMINOPHEN. [Concomitant]
     Active Substance: ACETAMINOPHEN
  10. SENNOSIDES. [Concomitant]
     Active Substance: SENNOSIDES
  11. FAMOTIDINE. [Concomitant]
     Active Substance: FAMOTIDINE

REACTIONS (3)
  - Disease progression [None]
  - Spinal cord compression [None]
  - Lung neoplasm malignant [None]

NARRATIVE: CASE EVENT DATE: 20160929
